FAERS Safety Report 7652405-3 (Version None)
Quarter: 2011Q3

REPORT INFORMATION
  Report Type: 
  Country: None (occurrence: None)
  Receive Date: 20110728
  Receipt Date: 20110712
  Transmission Date: 20111222
  Serious: Yes (Life-Threatening)
  Sender: FDA-Public Use
  Company Number: 969054

PATIENT
  Age: 55 Year
  Sex: Male
  Weight: 76.8 kg

DRUGS (4)
  1. CYCLOPHOSPHAMIDE [Suspect]
     Indication: CHRONIC LYMPHOCYTIC LEUKAEMIA
     Dosage: 600 MG/M2, DAY 1OF WEEKS 1, 5, 9, 13, 17, 21
  2. RITUXIMAB [Suspect]
     Indication: CHRONIC LYMPHOCYTIC LEUKAEMIA
     Dosage: 375 MG/M2 ON WEEKS 1, 5, 9, 13, 17, 21: 1 3 DAYS/WEEK FOR WEEK 1 AND 1 DAY/WEEK  FOR WEEKS 5-21,
  3. CAMPATH [Suspect]
     Indication: CHRONIC LYMPHOCYTIC LEUKAEMIA
     Dosage: 30 MG, TIW X 18 WKS, SUBCUTANEOUS
     Route: 058
  4. NIPENT [Suspect]
     Indication: CHRONIC LYMPHOCYTIC LEUKAEMIA
     Dosage: 4 MG/M2, DAY 1 OF WKS 1, 5, 9, 13, 17, 21),

REACTIONS (7)
  - HAEMOGLOBIN DECREASED [None]
  - TUMOUR ASSOCIATED FEVER [None]
  - HAEMATOCRIT DECREASED [None]
  - SINUS CONGESTION [None]
  - CHILLS [None]
  - WHITE BLOOD CELL COUNT DECREASED [None]
  - LYMPHOPENIA [None]
